FAERS Safety Report 7815091-5 (Version None)
Quarter: 2011Q4

REPORT INFORMATION
  Report Type: 
  Country: None (occurrence: None)
  Receive Date: 20111014
  Receipt Date: 20111014
  Transmission Date: 20120403
  Serious: Yes (Other)
  Sender: FDA-Public Use
  Company Number: None

PATIENT
  Sex: Female
  Weight: 52.163 kg

DRUGS (1)
  1. PRISTIQ [Suspect]
     Indication: DEPRESSION
     Dosage: 100 MG
     Route: 048
     Dates: start: 20100701, end: 20110915

REACTIONS (4)
  - DISTURBANCE IN ATTENTION [None]
  - PARAESTHESIA [None]
  - IMPAIRED WORK ABILITY [None]
  - DRUG WITHDRAWAL SYNDROME [None]
